FAERS Safety Report 18035759 (Version 1)
Quarter: 2020Q3

REPORT INFORMATION
  Report Type: Spontaneous
  Country: US (occurrence: US)
  Receive Date: 20200717
  Receipt Date: 20200717
  Transmission Date: 20201103
  Serious: No
  Sender: FDA-Public Use
  Company Number: None

PATIENT
  Age: 31 Year
  Sex: Female
  Weight: 82.1 kg

DRUGS (2)
  1. BUPRNORPHINE?NALOXONE TABS [Suspect]
     Active Substance: BUPRENORPHINE HYDROCHLORIDE\NALOXONE HYDROCHLORIDE
  2. BUPRENIRPHINE?NALOXONE 8?2MG LABS [Concomitant]

REACTIONS (3)
  - Rash [None]
  - Headache [None]
  - Unevaluable event [None]

NARRATIVE: CASE EVENT DATE: 20200710
